FAERS Safety Report 14228440 (Version 3)
Quarter: 2017Q4

REPORT INFORMATION
  Report Type: Spontaneous
  Country: JP (occurrence: JP)
  Receive Date: 20171127
  Receipt Date: 20171213
  Transmission Date: 20180321
  Serious: Yes (Other)
  Sender: FDA-Public Use
  Company Number: JP-UCBSA-2017047637

PATIENT
  Age: 21 Month
  Sex: Female

DRUGS (9)
  1. SECOBARBITAL [Concomitant]
     Active Substance: SECOBARBITAL
     Indication: SEIZURE
     Dosage: UNKNOWN DOSE
  2. MIDAZOLAM [Concomitant]
     Active Substance: MIDAZOLAM HYDROCHLORIDE
     Indication: SEIZURE
     Dosage: UNKNOWN DOSE
  3. PHENYTOIN. [Concomitant]
     Active Substance: PHENYTOIN
     Indication: SEIZURE
     Dosage: UNKNOWN DOSE
  4. PHENOBARBITAL. [Concomitant]
     Active Substance: PHENOBARBITAL
     Indication: SEIZURE
     Dosage: UNKNOWN DOSE
  5. LEVETIRACETAM. [Suspect]
     Active Substance: LEVETIRACETAM
     Indication: SEIZURE
     Dosage: 20 MG/KG, ONCE DAILY (QD)
     Route: 048
     Dates: start: 201510, end: 201510
  6. DIAZEPAM. [Concomitant]
     Active Substance: DIAZEPAM
     Indication: SEIZURE
     Dosage: UNKNOWN DOSE
  7. THIAMYLAL [Concomitant]
     Active Substance: THIAMYLAL
     Indication: SEIZURE
     Dosage: UNKNOWN DOSE
  8. LEVETIRACETAM. [Suspect]
     Active Substance: LEVETIRACETAM
     Dosage: 60 MG/KG, ONCE DAILY (QD)
     Route: 048
     Dates: start: 201510, end: 201603
  9. ZONISAMIDE. [Concomitant]
     Active Substance: ZONISAMIDE
     Indication: SEIZURE
     Dosage: UNKNOWN DOSE

REACTIONS (2)
  - Infantile spasms [Recovered/Resolved]
  - Off label use [Unknown]

NARRATIVE: CASE EVENT DATE: 201510
